FAERS Safety Report 17502784 (Version 1)
Quarter: 2020Q1

REPORT INFORMATION
  Report Type: Spontaneous
  Country: US (occurrence: US)
  Receive Date: 20200305
  Receipt Date: 20200305
  Transmission Date: 20200409
  Serious: No
  Sender: FDA-Public Use
  Company Number: US-ROCHE-2247307

PATIENT
  Age: 45 Year
  Sex: Female
  Weight: 75.3 kg

DRUGS (3)
  1. XOLAIR [Suspect]
     Active Substance: OMALIZUMAB
     Indication: CHRONIC SPONTANEOUS URTICARIA
     Dosage: ONGOING:NO
     Route: 058
  2. XOLAIR [Suspect]
     Active Substance: OMALIZUMAB
     Dosage: ONGOING,  INTRAMUSCULAR
     Route: 058
     Dates: start: 20190108
  3. XOLAIR [Suspect]
     Active Substance: OMALIZUMAB
     Dosage: ONGOING:YES
     Route: 058
     Dates: start: 20190108

REACTIONS (3)
  - Burning sensation [Recovered/Resolved]
  - Product quality issue [Unknown]
  - Injection site pain [Recovered/Resolved]

NARRATIVE: CASE EVENT DATE: 20190108
